FAERS Safety Report 11610583 (Version 1)
Quarter: 2015Q4

REPORT INFORMATION
  Report Type: Spontaneous
  Country: GB (occurrence: GB)
  Receive Date: 20151008
  Receipt Date: 20151008
  Transmission Date: 20160304
  Serious: Yes (Life-Threatening, Hospitalization)
  Sender: FDA-Public Use
  Company Number: GB-ACCORD-034153

PATIENT
  Age: 69 Year
  Sex: Female
  Weight: 88 kg

DRUGS (7)
  1. DIAZEPAM. [Concomitant]
     Active Substance: DIAZEPAM
     Route: 048
     Dates: start: 20150825, end: 20150909
  2. LISINOPRIL. [Suspect]
     Active Substance: LISINOPRIL
     Indication: PRODUCT USED FOR UNKNOWN INDICATION
     Route: 048
     Dates: start: 20140101, end: 20150910
  3. SERTRALINE [Interacting]
     Active Substance: SERTRALINE HYDROCHLORIDE
     Indication: DEPRESSION
     Route: 048
     Dates: start: 20150903, end: 20150910
  4. ATENOLOL/ATENOLOL HYDROCHLORIDE [Concomitant]
     Dosage: IN THE MORNING
     Route: 048
     Dates: start: 20140101
  5. BENDROFLUMETHIAZIDE [Interacting]
     Active Substance: BENDROFLUMETHIAZIDE
     Indication: PRODUCT USED FOR UNKNOWN INDICATION
     Route: 048
     Dates: start: 19991231, end: 20150910
  6. ACETYLSALICYLIC ACID [Concomitant]
     Active Substance: ASPIRIN
     Route: 048
     Dates: start: 20140101
  7. SIMVASTATIN. [Concomitant]
     Active Substance: SIMVASTATIN
     Dates: start: 20131227

REACTIONS (8)
  - Hyponatraemia [Recovering/Resolving]
  - Dysarthria [Recovering/Resolving]
  - VIIth nerve paralysis [Recovering/Resolving]
  - Fall [Unknown]
  - Blood magnesium decreased [Recovering/Resolving]
  - Drug interaction [Unknown]
  - Lid lag [Recovering/Resolving]
  - Hypokalaemia [Recovering/Resolving]

NARRATIVE: CASE EVENT DATE: 20150909
